FAERS Safety Report 5818143-4 (Version None)
Quarter: 2008Q3

REPORT INFORMATION
  Report Type: 
  Country: None (occurrence: None)
  Receive Date: 20080716
  Receipt Date: 20080701
  Transmission Date: 20090109
  Serious: Yes (Other)
  Sender: FDA-Public Use
  Company Number: TNZFR200800115

PATIENT
  Age: 86 Year
  Sex: Female

DRUGS (10)
  1. INNOHEP [Suspect]
     Indication: THROMBOSIS PROPHYLAXIS
     Dosage: (3500 IU), SUBCUTANEOUS
     Route: 058
     Dates: start: 20080601, end: 20080630
  2. ATACAND [Concomitant]
  3. STILLNOX (ZOLPIDEM TARTRATE) [Concomitant]
  4. INIPOMP (PANTOPRAZOLE) [Concomitant]
  5. DITROPAN [Concomitant]
  6. EFFEXOR [Concomitant]
  7. DOGMATIL (SULPIRIDE) [Concomitant]
  8. ACETAMINOPHEN [Concomitant]
  9. BICANYL (TERBUTALIN SULFATE) [Concomitant]
  10. PULMICORT [Concomitant]

REACTIONS (1)
  - DEEP VEIN THROMBOSIS [None]
